FAERS Safety Report 13801937 (Version 2)
Quarter: 2017Q3

REPORT INFORMATION
  Report Type: Report from Study
  Country: BR (occurrence: BR)
  Receive Date: 20170727
  Receipt Date: 20170813
  Transmission Date: 20171127
  Serious: Yes (Death, Life-Threatening, Hospitalization)
  Sender: FDA-Public Use
  Company Number: BR-B.I. PHARMACEUTICALS,INC./RIDGEFIELD-2016-BI-072244

PATIENT
  Age: 74 Year
  Sex: Male
  Weight: 57 kg

DRUGS (2)
  1. OFEV [Suspect]
     Active Substance: NINTEDANIB
     Indication: IDIOPATHIC PULMONARY FIBROSIS
     Route: 048
     Dates: start: 20160423, end: 20170115
  2. OMEPRAZOLE. [Concomitant]
     Active Substance: OMEPRAZOLE
     Indication: GASTRIC DISORDER
     Route: 048
     Dates: start: 201604

REACTIONS (19)
  - Dyspnoea [Unknown]
  - Haemoptysis [Unknown]
  - Feeding disorder [Recovered/Resolved]
  - Idiopathic pulmonary fibrosis [Fatal]
  - Pyrexia [Fatal]
  - Asthenia [Not Recovered/Not Resolved]
  - Weight decreased [Not Recovered/Not Resolved]
  - Mitral valve disease [Recovered/Resolved]
  - Drug ineffective [Not Recovered/Not Resolved]
  - Arrhythmia [Recovered/Resolved]
  - Anaemia [Unknown]
  - Decreased appetite [Recovered/Resolved]
  - Constipation [Not Recovered/Not Resolved]
  - Pneumonia [Fatal]
  - Cough [Unknown]
  - Dyspnoea [Not Recovered/Not Resolved]
  - Infection [Unknown]
  - Peripheral swelling [Recovered/Resolved]
  - Dyspnoea [Unknown]

NARRATIVE: CASE EVENT DATE: 201609
